FAERS Safety Report 4288923-8 (Version None)
Quarter: 2004Q1

REPORT INFORMATION
  Report Type: 
  Country: None (occurrence: None)
  Receive Date: 20040205
  Receipt Date: 20030429
  Transmission Date: 20041129
  Serious: Yes (Hospitalization)
  Sender: FDA-Public Use
  Company Number: 30013937-C567495-1

PATIENT
  Sex: Female

DRUGS (14)
  1. DIANEAL LOW CALCIUM W/ DEXTROSE 1.5% [Suspect]
     Indication: PERITONEAL DIALYSIS
     Dosage: DIANEAL LOW CALCIUM 1.5% DESTROSE 2L QD IP
     Route: 033
  2. DIANEAL LOW CALCIUM 2.5% DEXTROSE [Suspect]
     Indication: PERITONEAL DIALYSIS
     Dosage: DIANEAL LOW CALCIUM 2.5%  DEXTROSE 2L QD IP
     Route: 033
     Dates: start: 20040731
  3. IRON [Concomitant]
  4. REGULAR INSULIN [Concomitant]
  5. NHP INSULIN [Concomitant]
  6. FOLIC ACID [Concomitant]
  7. AUGMENTIN [Concomitant]
  8. VITAMIN C [Concomitant]
  9. NITROGLYCERIN [Concomitant]
  10. CALCIUM ACETATE [Concomitant]
  11. ADALAT [Concomitant]
  12. SODIUM POLYESTERENE SULFONIC [Concomitant]
  13. VITAMIN B WITH C [Concomitant]
  14. EPINEPHRINE (AS NEEDED FOR SHELLFISH REACTION) [Concomitant]

REACTIONS (1)
  - HYPERSENSITIVITY [None]
